FAERS Safety Report 10272306 (Version 1)
Quarter: 2014Q2

REPORT INFORMATION
  Report Type: Spontaneous
  Country: US (occurrence: None)
  Receive Date: 20140630
  Receipt Date: 20140630
  Transmission Date: 20141212
  Serious: No
  Sender: FDA-Public Use
  Company Number: None

PATIENT
  Age: 42 Year
  Sex: Female
  Weight: 108.86 kg

DRUGS (1)
  1. ZYRTEC 10MG MCNEIL CONSUMER HEALTHCARE [Suspect]
     Indication: MULTIPLE ALLERGIES
     Dates: start: 20140501, end: 20140627

REACTIONS (2)
  - Pruritus [None]
  - Drug dose omission [None]
